FAERS Safety Report 5947626-1 (Version None)
Quarter: 2008Q4

REPORT INFORMATION
  Report Type: 
  Country: None (occurrence: None)
  Receive Date: 20081107
  Receipt Date: 20081027
  Transmission Date: 20090506
  Serious: No
  Sender: FDA-Public Use
  Company Number: US024941

PATIENT
  Sex: Male

DRUGS (2)
  1. FENTORA [Suspect]
     Indication: INTERVERTEBRAL DISC PROTRUSION
     Dosage: 600 UG   BUCCAL
     Route: 002
  2. NORCO [Concomitant]

REACTIONS (3)
  - DRUG INEFFECTIVE [None]
  - DRUG PRESCRIBING ERROR [None]
  - POOR QUALITY DRUG ADMINISTERED [None]
